FAERS Safety Report 17753229 (Version 1)
Quarter: 2020Q2

REPORT INFORMATION
  Report Type: Spontaneous
  Country: FR (occurrence: FR)
  Receive Date: 20200506
  Receipt Date: 20200506
  Transmission Date: 20200714
  Serious: Yes (Death)
  Sender: FDA-Public Use
  Company Number: NVSC2020FR120382

PATIENT
  Age: 55 Year
  Sex: Female

DRUGS (3)
  1. HYDROXYZINE HYDROCHLORIDE. [Suspect]
     Active Substance: HYDROXYZINE HYDROCHLORIDE
     Indication: INTENTIONAL OVERDOSE
     Dosage: UNK
     Route: 065
     Dates: start: 201901, end: 201901
  2. BACLOFENE [Suspect]
     Active Substance: BACLOFEN
     Indication: INTENTIONAL OVERDOSE
     Dosage: UNK
     Route: 065
     Dates: start: 201901, end: 201901
  3. OXAZEPAM. [Suspect]
     Active Substance: OXAZEPAM
     Indication: INTENTIONAL OVERDOSE
     Dosage: UNK
     Route: 065
     Dates: start: 201901, end: 201901

REACTIONS (2)
  - Asphyxia [Fatal]
  - Poisoning deliberate [Fatal]

NARRATIVE: CASE EVENT DATE: 20190113
